FAERS Safety Report 24308112 (Version 1)
Quarter: 2024Q3

REPORT INFORMATION
  Report Type: Other
  Country: US (occurrence: US)
  Receive Date: 20240911
  Receipt Date: 20240911
  Transmission Date: 20241017
  Serious: No
  Sender: SIGMA TAU
  Company Number: US-LEADIANT BIOSCIENCES, INC.-2023STPI000471

PATIENT
  Sex: Male

DRUGS (1)
  1. MATULANE [Suspect]
     Active Substance: PROCARBAZINE HYDROCHLORIDE
     Indication: Hodgkin^s disease stage I
     Dosage: 50 MILLIGRAMS, TAKE 4 CAPSULES (200 MG TOTAL) DAILY OR AS DIRECTED BY ONCOLOGIST ON DAYS 1-7 AND DAY
     Route: 048
     Dates: start: 20231130

REACTIONS (3)
  - Product dose omission issue [Unknown]
  - Muscle spasms [Unknown]
  - Myalgia [Unknown]
